FAERS Safety Report 7678180-4 (Version None)
Quarter: 2011Q3

REPORT INFORMATION
  Report Type: 
  Country: None (occurrence: None)
  Receive Date: 20110811
  Receipt Date: 20110805
  Transmission Date: 20111222
  Serious: No
  Sender: FDA-Public Use
  Company Number: US-MEDIMMUNE-MEDI-0012357

PATIENT
  Sex: Male

DRUGS (1)
  1. SYNAGIS [Suspect]
     Dates: start: 20101007, end: 20101007

REACTIONS (2)
  - BRONCHIOLITIS [None]
  - EAR INFECTION [None]
